FAERS Safety Report 4673766-3 (Version None)
Quarter: 2005Q2

REPORT INFORMATION
  Report Type: 
  Country: None (occurrence: None)
  Receive Date: 20050524
  Receipt Date: 20050512
  Transmission Date: 20051028
  Serious: Yes (Congenital Anomaly)
  Sender: FDA-Public Use
  Company Number: 11115

PATIENT
  Age: 14 Year
  Sex: Male

DRUGS (1)
  1. METHOTREXATE [Suspect]

REACTIONS (16)
  - BODY HEIGHT BELOW NORMAL [None]
  - COMPUTERISED TOMOGRAM ABNORMAL [None]
  - CONGENITAL FOOT MALFORMATION [None]
  - CRANIOSYNOSTOSIS [None]
  - DEVELOPMENTAL DELAY [None]
  - DRUG EXPOSURE DURING PREGNANCY [None]
  - FACIAL DYSMORPHISM [None]
  - FEBRILE CONVULSION [None]
  - HYDROCEPHALUS [None]
  - KARYOTYPE ANALYSIS ABNORMAL [None]
  - MENTAL RETARDATION SEVERITY UNSPECIFIED [None]
  - MICROCEPHALY [None]
  - PREMATURE BABY [None]
  - SKULL MALFORMATION [None]
  - SPEECH DISORDER [None]
  - SYNDACTYLY [None]
